FAERS Safety Report 5083303-X (Version None)
Quarter: 2006Q3

REPORT INFORMATION
  Report Type: 
  Country: None (occurrence: None)
  Receive Date: 20060818
  Receipt Date: 20060512
  Transmission Date: 20061208
  Serious: Yes (Other)
  Sender: FDA-Public Use
  Company Number: US-BAYER-200613245BWH

PATIENT
  Age: 71 Year
  Sex: Male
  Weight: 103 kg

DRUGS (7)
  1. NEXAVAR [Suspect]
     Indication: RENAL CELL CARCINOMA STAGE UNSPECIFIED
     Route: 048
     Dates: start: 20060501
  2. NEXAVAR [Suspect]
     Dosage: AS USED: 200/400 MG  UNIT DOSE: 200 MG
     Route: 048
     Dates: start: 20060101, end: 20060101
  3. NEXAVAR [Suspect]
     Dosage: TOTAL DAILY DOSE: 800 MG  UNIT DOSE: 200 MG
     Route: 048
     Dates: start: 20060202, end: 20060101
  4. NEXAVAR [Suspect]
     Dosage: TOTAL DAILY DOSE: 400 MG  UNIT DOSE: 200 MG
     Route: 048
     Dates: start: 20060301, end: 20060501
  5. ACEON [Concomitant]
     Dosage: TOTAL DAILY DOSE: 4 MG
     Route: 048
  6. METFORMIN HYDROCHLORIDE [Concomitant]
     Dosage: TOTAL DAILY DOSE: 500 MG
     Route: 048
  7. ZOCOR [Concomitant]
     Dosage: TOTAL DAILY DOSE: 40 MG
     Route: 048

REACTIONS (12)
  - BLOOD ALKALINE PHOSPHATASE INCREASED [None]
  - BONE PAIN [None]
  - EPISTAXIS [None]
  - FATIGUE [None]
  - GAIT DISTURBANCE [None]
  - HEADACHE [None]
  - HYPERTENSION [None]
  - MUSCLE SPASMS [None]
  - NEPHROTIC SYNDROME [None]
  - PAIN IN EXTREMITY [None]
  - PALMAR-PLANTAR ERYTHRODYSAESTHESIA SYNDROME [None]
  - PROTEINURIA [None]
